FAERS Safety Report 18184748 (Version 1)
Quarter: 2020Q3

REPORT INFORMATION
  Report Type: Spontaneous
  Country: FR (occurrence: FR)
  Receive Date: 20200824
  Receipt Date: 20200824
  Transmission Date: 20201103
  Serious: Yes (Hospitalization)
  Sender: FDA-Public Use
  Company Number: FR-ROCHE-2663336

PATIENT
  Age: 44 Year
  Sex: Female
  Weight: 66 kg

DRUGS (5)
  1. CARBOPLATINE [Suspect]
     Active Substance: CARBOPLATIN
     Indication: LUNG ADENOCARCINOMA
     Dosage: MOST RECENT DOSE OF CARBOPLATIN: 31/JUL/2020
     Route: 042
     Dates: start: 20200629
  2. ALIMTA [Suspect]
     Active Substance: PEMETREXED DISODIUM
     Indication: LUNG ADENOCARCINOMA
     Dosage: MOST RECENT DOSE OF PEMETREXED DISODIUM: 31/JUL/2020
     Route: 042
     Dates: start: 20200629
  3. TAGRISSO [Suspect]
     Active Substance: OSIMERTINIB
     Indication: LUNG ADENOCARCINOMA
     Dosage: MOST RECENT DOSE OF OSIMERTINIB MESILATE : 27/JUN/2020
     Route: 048
     Dates: start: 201903
  4. AVASTIN [Suspect]
     Active Substance: BEVACIZUMAB
     Indication: LUNG ADENOCARCINOMA
     Dosage: MOST RECENT DOSE OF BEVACIZUMAB: 31/JUL/2020
     Route: 042
     Dates: start: 20200629
  5. INEXIUM [Concomitant]
     Active Substance: ESOMEPRAZOLE
     Indication: GASTROOESOPHAGEAL REFLUX DISEASE
     Dosage: 1 IN THE EVENING
     Route: 048
     Dates: start: 201801

REACTIONS (3)
  - Hepatocellular injury [Not Recovered/Not Resolved]
  - Blood alkaline phosphatase increased [Not Recovered/Not Resolved]
  - Gamma-glutamyltransferase increased [Not Recovered/Not Resolved]

NARRATIVE: CASE EVENT DATE: 20200710
